FAERS Safety Report 5315679-X (Version None)
Quarter: 2007Q2

REPORT INFORMATION
  Report Type: 
  Country: None (occurrence: None)
  Receive Date: 20070503
  Receipt Date: 20070423
  Transmission Date: 20071010
  Serious: Yes (Death)
  Sender: FDA-Public Use
  Company Number: US-MERCK-0704USA05402

PATIENT
  Age: 57 Year

DRUGS (2)
  1. CANCIDAS [Suspect]
     Indication: CANDIDIASIS
     Route: 065
  2. FLUCONAZOLE [Concomitant]
     Indication: CANDIDIASIS
     Route: 065

REACTIONS (2)
  - DEATH [None]
  - NO THERAPEUTIC RESPONSE [None]
